FAERS Safety Report 5285391-4 (Version None)
Quarter: 2007Q1

REPORT INFORMATION
  Report Type: 
  Country: None (occurrence: None)
  Receive Date: 20070328
  Receipt Date: 20070315
  Transmission Date: 20070707
  Serious: Yes (Other)
  Sender: FDA-Public Use
  Company Number: 2007SP003827

PATIENT
  Age: 79 Year
  Sex: Male

DRUGS (1)
  1. MOMETASONE FUROATE [Suspect]
     Indication: DERMATITIS
     Dosage: ONCE
     Dates: start: 20061101, end: 20061101

REACTIONS (5)
  - CONDITION AGGRAVATED [None]
  - DERMATITIS [None]
  - ECZEMA [None]
  - SKIN EXFOLIATION [None]
  - SKIN LESION [None]
